FAERS Safety Report 13015449 (Version 1)
Quarter: 2016Q4

REPORT INFORMATION
  Report Type: Spontaneous
  Country: FR (occurrence: FR)
  Receive Date: 20161211
  Receipt Date: 20161211
  Transmission Date: 20170207
  Serious: Yes (Life-Threatening, Hospitalization, Other)
  Sender: FDA-Public Use
  Company Number: FR-ASTRAZENECA-2016SF29478

PATIENT
  Age: 23923 Day
  Sex: Female

DRUGS (5)
  1. ASPEGIC [Suspect]
     Active Substance: ASPIRIN DL-LYSINE
     Indication: ACUTE CORONARY SYNDROME
     Dosage: 250 MG INFUSION SINGLE DOSE
     Route: 065
  2. ARIXTRA [Suspect]
     Active Substance: FONDAPARINUX SODIUM
     Indication: ACUTE CORONARY SYNDROME
     Dosage: 2.5 MG SINGLE DOSE
     Route: 058
  3. BRILIQUE [Suspect]
     Active Substance: TICAGRELOR
     Indication: ACUTE CORONARY SYNDROME
     Route: 048
  4. DOBUTAMINE [Concomitant]
     Active Substance: DOBUTAMINE\DOBUTAMINE HYDROCHLORIDE
  5. PRIMPERAN [Concomitant]
     Active Substance: METOCLOPRAMIDE HYDROCHLORIDE
     Indication: VOMITING

REACTIONS (6)
  - Brain stem haemorrhage [Not Recovered/Not Resolved]
  - Hydrocephalus [Unknown]
  - Coma [Unknown]
  - Tachycardia [Unknown]
  - Intraventricular haemorrhage [Unknown]
  - Haemodynamic instability [Unknown]

NARRATIVE: CASE EVENT DATE: 20161109
